FAERS Safety Report 8475067 (Version 3)
Quarter: 2012Q4

REPORT INFORMATION
  Report Type: 
  Country: US (occurrence: US)
  Receive Date: 20120323
  Receipt Date: 20121128
  Transmission Date: 20130627
  Serious: Yes (Other)
  Sender: FDA-Public Use
  Company Number: US-ASTRAZENECA-2012SE18546

PATIENT
  Age: 48 Year
  Sex: Male

DRUGS (2)
  1. NEXIUM [Suspect]
     Route: 048
  2. FAMOTIDINE [Concomitant]

REACTIONS (7)
  - Oesophageal haemorrhage [Unknown]
  - Haemorrhage [Unknown]
  - Haemoptysis [Unknown]
  - Gastrooesophageal reflux disease [Unknown]
  - Dyspnoea [Unknown]
  - Erosive oesophagitis [Unknown]
  - Drug dose omission [Unknown]
